FAERS Safety Report 25139410 (Version 2)
Quarter: 2025Q3

REPORT INFORMATION
  Report Type: Report from Study
  Country: US (occurrence: US)
  Receive Date: 20250331
  Receipt Date: 20250803
  Transmission Date: 20251021
  Serious: Yes (Hospitalization)
  Sender: ALEXION PHARMACEUTICALS
  Company Number: US-AstraZeneca-CH-00834432AP

PATIENT
  Sex: Female

DRUGS (1)
  1. BENRALIZUMAB [Suspect]
     Active Substance: BENRALIZUMAB
     Indication: Asthma
     Dosage: 30 MILLIGRAM, Q8W

REACTIONS (5)
  - Illness [Recovering/Resolving]
  - Product dose omission issue [Unknown]
  - Musculoskeletal disorder [Recovering/Resolving]
  - Device leakage [Unknown]
  - Muscular weakness [Recovering/Resolving]
